FAERS Safety Report 8161281-4 (Version None)
Quarter: 2012Q1

REPORT INFORMATION
  Report Type: 
  Country: None (occurrence: None)
  Receive Date: 20120224
  Receipt Date: 20120214
  Transmission Date: 20120608
  Serious: Yes (Other)
  Sender: FDA-Public Use
  Company Number: CA-JNJFOC-20120208034

PATIENT
  Sex: Male
  Weight: 58.5 kg

DRUGS (4)
  1. REMICADE [Suspect]
     Indication: CROHN'S DISEASE
     Dosage: PATIENT'S 11TH INFUSION
     Route: 042
     Dates: start: 20120214
  2. ACETAMINOPHEN [Concomitant]
     Dosage: AS REQUIRED (PRN)
     Route: 065
  3. SOLU-CORTEF [Concomitant]
     Indication: PREMEDICATION
     Route: 042
  4. REMICADE [Suspect]
     Route: 042
     Dates: start: 20100901

REACTIONS (3)
  - FISTULA [None]
  - INFUSION RELATED REACTION [None]
  - PRURITUS [None]
